FAERS Safety Report 7866776-6 (Version None)
Quarter: 2011Q4

REPORT INFORMATION
  Report Type: 
  Country: None (occurrence: None)
  Receive Date: 20111028
  Receipt Date: 20110816
  Transmission Date: 20120403
  Serious: No
  Sender: FDA-Public Use
  Company Number: US-GLAXOSMITHKLINE-A0941240A

PATIENT
  Age: 64 Year
  Sex: Female

DRUGS (11)
  1. SIMVASTATIN [Concomitant]
  2. METFORMIN HCL [Concomitant]
  3. TRILIPIX [Concomitant]
  4. LEVOTHYROXINE SODIUM [Concomitant]
  5. VOTRIENT [Suspect]
     Indication: RENAL CELL CARCINOMA STAGE IV
     Dosage: 800MG PER DAY
     Route: 048
     Dates: start: 20110807
  6. LOVAZA [Concomitant]
  7. ADVAIR DISKUS 100/50 [Concomitant]
  8. HUMALOG [Concomitant]
  9. LISINOPRIL [Concomitant]
  10. ADVAIR DISKUS 100/50 [Suspect]
     Indication: COUGH
     Dosage: 1PUFF TWICE PER DAY
     Route: 055
     Dates: start: 20110807
  11. LANTUS [Concomitant]

REACTIONS (4)
  - FATIGUE [None]
  - DYSPNOEA [None]
  - ADVERSE EVENT [None]
  - DYSPHONIA [None]
